FAERS Safety Report 20004177 (Version 1)
Quarter: 2021Q4

REPORT INFORMATION
  Report Type: Spontaneous
  Country: US (occurrence: US)
  Receive Date: 20211028
  Receipt Date: 20211028
  Transmission Date: 20220303
  Serious: Yes (Congenital Anomaly, Other)
  Sender: FDA-Public Use
  Company Number: US-LAURUS-001141

PATIENT
  Age: 4 Month
  Sex: Male

DRUGS (3)
  1. EMTRICITABINE\TENOFOVIR DISOPROXIL FUMARATE [Suspect]
     Active Substance: EMTRICITABINE\TENOFOVIR DISOPROXIL FUMARATE
     Indication: Product used for unknown indication
     Route: 064
  2. DARUNAVIR [Suspect]
     Active Substance: DARUNAVIR
     Indication: Product used for unknown indication
     Route: 064
  3. RITONAVIR [Suspect]
     Active Substance: RITONAVIR
     Indication: Product used for unknown indication
     Route: 064

REACTIONS (7)
  - Trisomy 21 [Unknown]
  - Pulmonary hypertension [Unknown]
  - Gene mutation [Unknown]
  - Foetal exposure during pregnancy [Unknown]
  - Atrioventricular septal defect [Unknown]
  - Ventricular hypoplasia [Unknown]
  - Coarctation of the aorta [Unknown]
